FAERS Safety Report 8168854-3 (Version None)
Quarter: 2012Q1

REPORT INFORMATION
  Report Type: 
  Country: None (occurrence: None)
  Receive Date: 20120227
  Receipt Date: 20120214
  Transmission Date: 20120608
  Serious: No
  Sender: FDA-Public Use
  Company Number: GB-MYLANLABS-2012S1003299

PATIENT
  Age: 67 Year
  Sex: Male

DRUGS (6)
  1. DULOXETIME HYDROCHLORIDE [Concomitant]
     Indication: NEURALGIA
     Route: 048
  2. VARDENAFIL HYDROCHLORIDE (LEVITRA) [Concomitant]
     Indication: ERECTILE DYSFUNCTION
     Route: 048
  3. NAPROXEN [Suspect]
     Indication: PAIN MANAGEMENT
     Route: 048
     Dates: start: 20120106, end: 20120113
  4. METFORMIN HCL [Concomitant]
     Indication: DIABETES MELLITUS
     Route: 048
  5. NOVOMIX [Concomitant]
     Indication: DIABETES MELLITUS
     Route: 058
  6. SIMVASTATIN [Concomitant]
     Indication: HYPERCHOLESTEROLAEMIA
     Route: 048

REACTIONS (1)
  - HYPOAESTHESIA [None]
